FAERS Safety Report 11573214 (Version 1)
Quarter: 2015Q3

REPORT INFORMATION
  Report Type: Other
  Country: DE (occurrence: DE)
  Receive Date: 20150929
  Receipt Date: 20150929
  Transmission Date: 20151125
  Serious: Yes (Other)
  Sender: FDA-Public Use
  Company Number: DE-MYLANLABS-2015M1032217

PATIENT

DRUGS (8)
  1. PROTAPHANE [Concomitant]
     Active Substance: INSULIN HUMAN
     Indication: GESTATIONAL DIABETES
     Dosage: UNK
     Route: 064
  2. VALPROATE [Suspect]
     Active Substance: VALPROATE SODIUM
     Indication: MANIA
     Dosage: 2300 [MG/D ]/ VARYING DOSAGE
     Route: 064
     Dates: start: 20131026, end: 20140725
  3. QUETIAPINE [Concomitant]
     Active Substance: QUETIAPINE
     Indication: MANIA
     Dosage: 100 [MG/D ]/ SELDOM, IF REQUIRED.  50 OR 100 MG/D. ONCE IN 38+4 (24.7.)
     Route: 064
     Dates: start: 20131026, end: 20140724
  4. LITHIUM. [Suspect]
     Active Substance: LITHIUM
     Indication: MANIA
     Dosage: 900 [MG/D ]
     Route: 064
     Dates: start: 20140107, end: 20140224
  5. QUILONUM RETARD [Concomitant]
     Active Substance: LITHIUM CARBONATE
     Indication: MANIA
     Dosage: 2250 [MG/D ]/ DOSAGE REDUCTION TO 450MG/D
     Route: 064
     Dates: start: 20140225, end: 20140725
  6. NOVORAPID [Concomitant]
     Active Substance: INSULIN ASPART
     Indication: GESTATIONAL DIABETES
     Dosage: UNK
     Route: 064
  7. L-THYROXIN [Concomitant]
     Active Substance: LEVOTHYROXINE SODIUM
     Indication: HYPOTHYROIDISM
     Dosage: 50 ?G, QD (50 [?G/D ])
     Route: 064
     Dates: start: 20140102, end: 20140627
  8. SEROQUEL [Suspect]
     Active Substance: QUETIAPINE FUMARATE
     Indication: MANIA
     Dosage: 200 [MG/D ]
     Route: 064
     Dates: start: 20140102, end: 20140725

REACTIONS (4)
  - Dysmorphism [Not Recovered/Not Resolved]
  - Atrial septal defect [Unknown]
  - Ventricular septal defect [Unknown]
  - Foetal exposure during pregnancy [Unknown]

NARRATIVE: CASE EVENT DATE: 20140725
